FAERS Safety Report 8429365-0 (Version None)
Quarter: 2012Q2

REPORT INFORMATION
  Report Type: 
  Country: None (occurrence: None)
  Receive Date: 20120612
  Receipt Date: 20120606
  Transmission Date: 20120825
  Serious: Yes (Hospitalization)
  Sender: FDA-Public Use
  Company Number: US-PFIZER INC-2012136956

PATIENT
  Sex: Female
  Weight: 72.562 kg

DRUGS (1)
  1. VFEND [Suspect]
     Indication: EYE DISORDER
     Dosage: UNK, 2X/DAY

REACTIONS (3)
  - EYE NAEVUS [None]
  - EYE INFECTION [None]
  - BLOOD POTASSIUM ABNORMAL [None]
